FAERS Safety Report 4500247-X (Version None)
Quarter: 2004Q4

REPORT INFORMATION
  Report Type: 
  Country: None (occurrence: None)
  Receive Date: 20041109
  Receipt Date: 20040915
  Transmission Date: 20050328
  Serious: Yes (Life-Threatening)
  Sender: FDA-Public Use
  Company Number: 10061949-NA03-3

PATIENT
  Age: 2 Year
  Sex: Female
  Weight: 13 kg

DRUGS (13)
  1. 1B6626P 10% TRAVASOL SOLUTION [Suspect]
     Indication: SHORT-BOWEL SYNDROME
     Dosage: 26MG IN TPN, QD, IV
     Route: 042
     Dates: start: 20021001
  2. 1B6626P 10% TRAVASOL SOLUTION [Suspect]
     Indication: VOLVULUS OF BOWEL
     Dosage: 26MG IN TPN, QD, IV
     Route: 042
     Dates: start: 20021001
  3. 1B6626P 10% TRAVASOL SOLUTION [Suspect]
  4. INTRALIPID 10% [Suspect]
     Indication: SHORT-BOWEL SYNDROME
     Dosage: 74 ML IN TPN, QD, IV
     Route: 042
     Dates: start: 20021001, end: 20040914
  5. INTRALIPID 10% [Suspect]
     Indication: VOLVULUS OF BOWEL
     Dosage: 74 ML IN TPN, QD, IV
     Route: 042
     Dates: start: 20021001, end: 20040914
  6. INFUVITE PEDIATRIC [Suspect]
     Indication: SHORT-BOWEL SYNDROME
     Dosage: 5 ML QD
  7. INFUVITE PEDIATRIC [Suspect]
     Indication: VOLVULUS OF BOWEL
     Dosage: 5 ML QD
  8. DEXTROSE 70% [Concomitant]
  9. MULTI-VITAMIN [Concomitant]
  10. VITAMIC C [Concomitant]
  11. HEPARIN [Concomitant]
  12. LEVOCARNITINE [Concomitant]
  13. STERILE WATER [Concomitant]

REACTIONS (5)
  - CHOLESTASIS [None]
  - CONDITION AGGRAVATED [None]
  - HEPATIC FAILURE [None]
  - HYPERBILIRUBINAEMIA [None]
  - PANCREATITIS [None]
